FAERS Safety Report 9587901 (Version 3)
Quarter: 2014Q1

REPORT INFORMATION
  Report Type: Report from Study
  Country: US (occurrence: US)
  Receive Date: 20131003
  Receipt Date: 20140129
  Transmission Date: 20141002
  Serious: Yes (Hospitalization)
  Sender: FDA-Public Use
  Company Number: US-GLAXOSMITHKLINE-A1044027A

PATIENT
  Age: 35 Year
  Sex: Male
  Weight: 117 kg

DRUGS (11)
  1. PAZOPANIB [Suspect]
     Indication: NEOPLASM
     Dosage: 800MG PER DAY
     Route: 048
     Dates: start: 20130515, end: 20130902
  2. INVESTIGATIONAL DRUG [Suspect]
     Indication: NEOPLASM
     Dosage: 782MG EVERY 3 WEEKS
     Dates: start: 20130515, end: 20130821
  3. AMLODIPINE [Concomitant]
     Dosage: 5MG PER DAY
  4. VITAMIN B12 [Concomitant]
     Dosage: 1000MCG PER DAY
     Route: 048
  5. DOCUSATE [Concomitant]
  6. EVEROLIMUS [Concomitant]
     Dosage: 5MG PER DAY
     Dates: start: 20130918
  7. ATIVAN [Concomitant]
     Indication: ANXIETY
     Dosage: 1MG AS REQUIRED
  8. NAPROXEN [Concomitant]
     Dosage: 220MG AS REQUIRED
  9. OMEPRAZOLE [Concomitant]
     Dosage: 40MG PER DAY
  10. OXYCONTIN [Concomitant]
     Dosage: 30MG TWICE PER DAY
  11. OXYCODONE [Concomitant]

REACTIONS (1)
  - Anaemia [Recovered/Resolved]
